FAERS Safety Report 6438846-0 (Version None)
Quarter: 2009Q4

REPORT INFORMATION
  Report Type: 
  Country: None (occurrence: None)
  Receive Date: 20091111
  Receipt Date: 20091111
  Transmission Date: 20100525
  Serious: Yes (Life-Threatening, Hospitalization, Disabling, Other)
  Sender: FDA-Public Use
  Company Number: None

PATIENT
  Sex: Female
  Weight: 75.7507 kg

DRUGS (3)
  1. CLONIDINE [Suspect]
     Dosage: .1 MG 2X PILLS
     Route: 048
     Dates: start: 20080828
  2. LABETALOL HCL [Suspect]
     Dosage: 10 MG 1 INJECTION
     Route: 042
  3. ATIVAN [Suspect]
     Dosage: 1 MG 1 INJECTION

REACTIONS (14)
  - ABDOMINAL PAIN UPPER [None]
  - AMNESIA [None]
  - ASTHENIA [None]
  - BLOOD PRESSURE FLUCTUATION [None]
  - CARDIAC DISORDER [None]
  - DISORIENTATION [None]
  - DYSPEPSIA [None]
  - EYE DISORDER [None]
  - FATIGUE [None]
  - HEADACHE [None]
  - HYPERHIDROSIS [None]
  - LOSS OF CONSCIOUSNESS [None]
  - PULSE ABNORMAL [None]
  - VISUAL IMPAIRMENT [None]
